FAERS Safety Report 25136694 (Version 1)
Quarter: 2025Q1

REPORT INFORMATION
  Report Type: Spontaneous
  Country: US (occurrence: US)
  Receive Date: 20250328
  Receipt Date: 20250328
  Transmission Date: 20250409
  Serious: No
  Sender: Harrow Health
  Company Number: US-HARROW-HAR-2025-US-00023

PATIENT
  Age: 75 Year
  Sex: Female

DRUGS (6)
  1. VEVYE [Suspect]
     Active Substance: CYCLOSPORINE
     Route: 047
     Dates: start: 20250205
  2. BUPROPION [Concomitant]
     Active Substance: BUPROPION
  3. CARBIDOPA LEVODOPA [Concomitant]
     Active Substance: CARBIDOPA\LEVODOPA
  4. PRIMIDONE [Concomitant]
     Active Substance: PRIMIDONE
  5. EZETIMIBE [Concomitant]
     Active Substance: EZETIMIBE
  6. MONTELUKAST [Concomitant]
     Active Substance: MONTELUKAST

REACTIONS (1)
  - Eye irritation [Not Recovered/Not Resolved]

NARRATIVE: CASE EVENT DATE: 20250205
